FAERS Safety Report 9645346 (Version 2)
Quarter: 2014Q1

REPORT INFORMATION
  Report Type: Spontaneous
  Country: US (occurrence: None)
  Receive Date: 20131023
  Receipt Date: 20140102
  Transmission Date: 20141002
  Serious: Yes (Death)
  Sender: FDA-Public Use
  Company Number: UTC-039353

PATIENT
  Age: 50 Year
  Sex: Male
  Weight: 108.3 kg

DRUGS (2)
  1. REMODULIN [Suspect]
     Indication: COR PULMONALE CHRONIC
     Dosage: 15.84 UG/KG (0.011 UG/KG, 1 IN MIN), INTRACENOUS DRIP
     Route: 041
     Dates: start: 20130422
  2. COUMADIN (WARFARIN SODIUM) [Concomitant]

REACTIONS (1)
  - Death [None]
